FAERS Safety Report 7488804-2 (Version None)
Quarter: 2011Q2

REPORT INFORMATION
  Report Type: 
  Country: None (occurrence: None)
  Receive Date: 20110511
  Receipt Date: 20110426
  Transmission Date: 20111010
  Serious: Yes (Hospitalization, Other)
  Sender: FDA-Public Use
  Company Number: 023260

PATIENT
  Sex: Female

DRUGS (4)
  1. FENTANYL [Concomitant]
  2. IMURAN [Concomitant]
  3. PERCOCET [Concomitant]
  4. CIMZIA [Suspect]
     Indication: CROHN'S DISEASE
     Dosage: (200 MG 1 X/2 WEEKS SUBCUTANEOUS)
     Route: 058
     Dates: start: 20081118

REACTIONS (3)
  - PNEUMONIA [None]
  - OROPHARYNGEAL CANDIDIASIS [None]
  - PHARYNGITIS STREPTOCOCCAL [None]
